FAERS Safety Report 4439485-3 (Version None)
Quarter: 2004Q3

REPORT INFORMATION
  Report Type: 
  Country: None (occurrence: None)
  Receive Date: 20040830
  Receipt Date: 20040816
  Transmission Date: 20050211
  Serious: Yes (Death)
  Sender: FDA-Public Use
  Company Number: 2004057204

PATIENT
  Age: 70 Year
  Sex: Female

DRUGS (2)
  1. UNASYN [Suspect]
     Indication: INFECTION
     Dosage: INTRAVENOUS
     Route: 042
  2. UNASYN [Suspect]
     Indication: PYREXIA
     Dosage: INTRAVENOUS
     Route: 042

REACTIONS (1)
  - TOXIC EPIDERMAL NECROLYSIS [None]
